FAERS Safety Report 23438068 (Version 1)
Quarter: 2024Q1

REPORT INFORMATION
  Report Type: Spontaneous
  Country: AU (occurrence: AU)
  Receive Date: 20240124
  Receipt Date: 20240124
  Transmission Date: 20240410
  Serious: Yes (Hospitalization, Other)
  Sender: FDA-Public Use
  Company Number: AU-OTSUKA-2023_012043

PATIENT
  Age: 35 Year
  Sex: Male
  Weight: 104 kg

DRUGS (23)
  1. DIAZEPAM [Interacting]
     Active Substance: DIAZEPAM
     Indication: Suicidal ideation
     Dosage: 30 MG
     Route: 065
  2. ACETAMINOPHEN [Interacting]
     Active Substance: ACETAMINOPHEN
     Indication: Suicidal ideation
     Dosage: 2 GRAM
     Route: 065
     Dates: end: 20230131
  3. ACETAMINOPHEN [Interacting]
     Active Substance: ACETAMINOPHEN
     Dosage: 2 GRAM
     Route: 065
     Dates: end: 20230131
  4. ZOPICLONE [Suspect]
     Active Substance: ZOPICLONE
     Indication: Suicidal ideation
     Dosage: 15 MG, QD (AT NIGHT)
     Route: 065
  5. ZOPICLONE [Suspect]
     Active Substance: ZOPICLONE
     Indication: Insomnia
  6. RISPERIDONE [Suspect]
     Active Substance: RISPERIDONE
     Indication: Suicidal ideation
     Dosage: UNK
     Route: 065
  7. OLANZAPINE [Suspect]
     Active Substance: OLANZAPINE
     Indication: Product used for unknown indication
     Dosage: UNK
     Route: 065
  8. QUETIAPINE [Suspect]
     Active Substance: QUETIAPINE
     Indication: Suicidal ideation
     Dosage: UNK
     Route: 065
  9. QUETIAPINE [Suspect]
     Active Substance: QUETIAPINE
     Indication: Agitation
     Dosage: 800MG, AT NIGHT
     Route: 065
  10. QUETIAPINE [Suspect]
     Active Substance: QUETIAPINE
     Dosage: 400 MG, QD (AT NIGHT)
     Route: 065
  11. ARIPIPRAZOLE [Interacting]
     Active Substance: ARIPIPRAZOLE
     Indication: Suicidal ideation
     Dosage: 30MG IN THE MORNING
     Route: 065
     Dates: start: 2018
  12. BREXPIPRAZOLE [Suspect]
     Active Substance: BREXPIPRAZOLE
     Indication: Suicidal ideation
     Dosage: 4 MG, QD
     Route: 048
  13. AMISULPRIDE [Suspect]
     Active Substance: AMISULPRIDE
     Indication: Gynaecomastia
     Dosage: 400 MG
     Route: 065
  14. AMISULPRIDE [Suspect]
     Active Substance: AMISULPRIDE
     Indication: Hyperprolactinaemia
     Dosage: UNK
     Route: 065
  15. AMISULPRIDE [Suspect]
     Active Substance: AMISULPRIDE
     Indication: Sexual dysfunction
  16. AMISULPRIDE [Suspect]
     Active Substance: AMISULPRIDE
     Indication: Suicidal ideation
  17. VENLAFAXINE [Suspect]
     Active Substance: VENLAFAXINE HYDROCHLORIDE
     Indication: Suicidal ideation
     Dosage: 375 MG, QD (AT NIGHT)
     Route: 065
  18. CLOZAPINE [Suspect]
     Active Substance: CLOZAPINE
     Indication: Suicidal ideation
     Dosage: UNK
     Route: 065
  19. ZUCLOPENTHIXOL ACETATE [Suspect]
     Active Substance: ZUCLOPENTHIXOL ACETATE
     Indication: Suicidal ideation
     Dosage: 20 MG, BID
     Route: 065
     Dates: start: 202304
  20. VALPROATE [Suspect]
     Active Substance: VALPROIC ACID
     Indication: Suicidal ideation
     Dosage: 300 MG, IN THE MORNING, 1500MG AT NIGHT
     Route: 065
  21. ZIPRASIDONE [Suspect]
     Active Substance: ZIPRASIDONE
     Indication: Suicidal ideation
     Dosage: 80 MG, QD
     Route: 065
  22. CHLORPROMAZINE [Suspect]
     Active Substance: CHLORPROMAZINE
     Indication: Suicidal ideation
     Dosage: UNK
     Route: 065
  23. CARIPRAZINE [Suspect]
     Active Substance: CARIPRAZINE
     Indication: Suicidal ideation
     Dosage: UNK
     Route: 065

REACTIONS (39)
  - Paranoia [Unknown]
  - Delusion [Unknown]
  - Hallucination, visual [Unknown]
  - Orthostatic hypotension [Unknown]
  - Spasmodic dysphonia [Unknown]
  - White blood cell count increased [Unknown]
  - Antipsychotic drug level increased [Unknown]
  - Hallucinations, mixed [Unknown]
  - Hallucination, auditory [Not Recovered/Not Resolved]
  - Insomnia [Unknown]
  - Dizziness [Unknown]
  - Tachycardia [Unknown]
  - Hypotension [Unknown]
  - Intracranial pressure increased [Unknown]
  - Social anxiety disorder [Unknown]
  - Hypersomnia [Unknown]
  - Hyperhidrosis [Unknown]
  - Chest discomfort [Unknown]
  - Self-injurious ideation [Unknown]
  - Suicidal ideation [Unknown]
  - Homicidal ideation [Unknown]
  - Loss of personal independence in daily activities [Unknown]
  - Myocarditis [Unknown]
  - Condition aggravated [Unknown]
  - Extrapyramidal disorder [Unknown]
  - Persecutory delusion [Not Recovered/Not Resolved]
  - Intentional self-injury [Unknown]
  - Gynaecomastia [Unknown]
  - Troponin increased [Unknown]
  - Delusion of reference [Unknown]
  - Alcohol interaction [Unknown]
  - Alcohol abuse [Unknown]
  - C-reactive protein increased [Unknown]
  - Aggression [Unknown]
  - Malaise [Unknown]
  - Psychotic disorder [Unknown]
  - Blood prolactin increased [Unknown]
  - Schizoaffective disorder [Recovered/Resolved]
  - Hallucination, tactile [Unknown]

NARRATIVE: CASE EVENT DATE: 20170101
